FAERS Safety Report 9656786 (Version 3)
Quarter: 2014Q1

REPORT INFORMATION
  Report Type: Report from Study
  Country: JP (occurrence: JP)
  Receive Date: 20131030
  Receipt Date: 20140116
  Transmission Date: 20141002
  Serious: Yes (Hospitalization)
  Sender: FDA-Public Use
  Company Number: JP-TAKEDA-2013TJP002203

PATIENT
  Age: 74 Year
  Sex: Female
  Weight: 55 kg

DRUGS (9)
  1. LANSOPRAZOLE [Suspect]
     Indication: PROPHYLAXIS AGAINST GASTROINTESTINAL ULCER
     Dosage: 15 MG, QD
     Route: 048
     Dates: start: 20110701, end: 20120511
  2. LANSOPRAZOLE [Suspect]
     Dosage: 15 MG, QD
     Route: 048
     Dates: start: 20120608
  3. BAYASPIRIN [Concomitant]
     Indication: THROMBOSIS PROPHYLAXIS
     Dosage: 100 MG, 1 DAYS
     Route: 048
     Dates: end: 20120511
  4. AMLODIPINE                         /00972402/ [Concomitant]
     Dosage: 5 MG, 1 DAYS
     Route: 048
  5. IRBESARTAN [Concomitant]
     Dosage: 100 MG, 1 DAYS
     Route: 048
  6. TRANDATE [Concomitant]
     Dosage: 100 MG, 1 DAYS
     Route: 048
  7. MYSLEE [Concomitant]
     Indication: INSOMNIA
     Dosage: 10 MG, 1 DAYS
     Route: 048
  8. PURSENNID                          /00571902/ [Concomitant]
     Indication: CONSTIPATION
     Dosage: 24 MG, 1 DAYS
     Route: 048
  9. MAGNESIUM OXIDE [Concomitant]
     Indication: CONSTIPATION
     Dosage: 1980 MG, 1 DAYS
     Route: 048

REACTIONS (1)
  - Intracranial aneurysm [Recovering/Resolving]
